FAERS Safety Report 5064623-1 (Version None)
Quarter: 2006Q3

REPORT INFORMATION
  Report Type: 
  Country: None (occurrence: None)
  Receive Date: 20060706
  Receipt Date: 20060407
  Transmission Date: 20061208
  Serious: No
  Sender: FDA-Public Use
  Company Number: 200612227BWH

PATIENT
  Sex: Male

DRUGS (4)
  1. LEVITRA [Suspect]
     Indication: SPONTANEOUS PENILE ERECTION
     Dosage: 20 MG, Q2WK, ORAL
     Route: 048
  2. VITAMINS NOS [Concomitant]
  3. ASPIRIN [Concomitant]
  4. NIACIN [Concomitant]

REACTIONS (1)
  - ERECTILE DYSFUNCTION [None]
